FAERS Safety Report 23796190 (Version 4)
Quarter: 2025Q1

REPORT INFORMATION
  Report Type: Report from Study
  Country: AR (occurrence: AR)
  Receive Date: 20240430
  Receipt Date: 20250120
  Transmission Date: 20250408
  Serious: Yes (Other)
  Sender: JOHNSON AND JOHNSON
  Company Number: AR-JNJFOC-20231146191

PATIENT
  Age: 68 Year
  Sex: Female
  Weight: 78 kg

DRUGS (4)
  1. SIMPONI [Suspect]
     Active Substance: GOLIMUMAB
     Indication: Rheumatoid arthritis
     Route: 058
     Dates: start: 20230110
  2. SIMPONI [Suspect]
     Active Substance: GOLIMUMAB
  3. TAFIROL [PARACETAMOL] [Concomitant]
  4. ALTRADAY [Concomitant]

REACTIONS (5)
  - Rheumatoid arthritis [Recovering/Resolving]
  - Ear infection [Unknown]
  - Drug ineffective [Unknown]
  - Asthma [Recovering/Resolving]
  - Product dose omission issue [Unknown]

NARRATIVE: CASE EVENT DATE: 20230101
